FAERS Safety Report 8873082 (Version 1)
Quarter: 2012Q4

REPORT INFORMATION
  Report Type: 
  Country: BR (occurrence: BR)
  Receive Date: 20121029
  Receipt Date: 20121029
  Transmission Date: 20130627
  Serious: Yes (Hospitalization, Other)
  Sender: FDA-Public Use
  Company Number: PHHY2012BR095666

PATIENT
  Sex: Male
  Weight: 88 kg

DRUGS (6)
  1. CALCIUM CARBONATE [Suspect]
     Indication: OSTEOPENIA
     Dosage: 1 DF, QD
  2. MEMANTINE HYDROCHLORIDE [Concomitant]
     Dosage: 1 DF, QD
     Route: 048
  3. XATRAL [Concomitant]
  4. SODIUM CHLORIDE [Concomitant]
     Route: 048
  5. ACETYLSALICYLIC ACID [Concomitant]
     Dosage: 1 DF, QD
     Route: 048
  6. OPTIVE LUBRICANT EYE DROPS [Concomitant]
     Dosage: 1 gtt, TID

REACTIONS (5)
  - Nephrolithiasis [Not Recovered/Not Resolved]
  - Tremor [Not Recovered/Not Resolved]
  - Musculoskeletal pain [Not Recovered/Not Resolved]
  - Tablet physical issue [None]
  - Product quality issue [None]
